FAERS Safety Report 5171564-8 (Version None)
Quarter: 2006Q4

REPORT INFORMATION
  Report Type: 
  Country: None (occurrence: None)
  Receive Date: 20061208
  Receipt Date: 20061208
  Transmission Date: 20070319
  Serious: Yes (Other)
  Sender: FDA-Public Use
  Company Number: None

PATIENT
  Sex: Female

DRUGS (6)
  1. ABILIFY [Suspect]
     Indication: ANXIETY
     Dosage: 2.5MG DAILY PO
     Route: 048
     Dates: start: 20061010, end: 20061016
  2. ABILIFY [Suspect]
     Indication: BODY DYSMORPHIC DISORDER
     Dosage: 2.5MG DAILY PO
     Route: 048
     Dates: start: 20061010, end: 20061016
  3. PROZAC [Suspect]
     Indication: ANXIETY
     Dosage: 60MG DAILY PO
     Route: 048
     Dates: start: 20060818, end: 20061017
  4. PROZAC [Suspect]
     Indication: BINGE EATING
     Dosage: 60MG DAILY PO
     Route: 048
     Dates: start: 20060818, end: 20061017
  5. PROZAC [Suspect]
     Indication: DEPRESSION
     Dosage: 60MG DAILY PO
     Route: 048
     Dates: start: 20060818, end: 20061017
  6. PROZAC [Suspect]
     Indication: PURGING
     Dosage: 60MG DAILY PO
     Route: 048
     Dates: start: 20060818, end: 20061017

REACTIONS (6)
  - BODY TEMPERATURE INCREASED [None]
  - FLUSHING [None]
  - MUSCLE RIGIDITY [None]
  - TACHYCARDIA [None]
  - TREMOR [None]
  - VISION BLURRED [None]
